FAERS Safety Report 11072757 (Version 3)
Quarter: 2015Q3

REPORT INFORMATION
  Report Type: Spontaneous
  Country: JP (occurrence: JP)
  Receive Date: 20150428
  Receipt Date: 20150729
  Transmission Date: 20151125
  Serious: Yes (Death, Life-Threatening, Hospitalization, Disabling)
  Sender: FDA-Public Use
  Company Number: JP-ELI_LILLY_AND_COMPANY-JP201504007203

PATIENT
  Age: 74 Year
  Sex: Female
  Weight: 38 kg

DRUGS (3)
  1. ATORVASTATIN [Concomitant]
     Active Substance: ATORVASTATIN
     Indication: DYSLIPIDAEMIA
     Dosage: 10 MG, QD
     Route: 048
  2. FORTEO [Suspect]
     Active Substance: TERIPARATIDE
     Indication: OSTEOPOROSIS
     Dosage: 20 UG, QD
     Route: 058
     Dates: start: 20150114
  3. CONIEL [Concomitant]
     Active Substance: BENIDIPINE HYDROCHLORIDE
     Indication: HYPERTENSION
     Dosage: 4 MG, QD
     Route: 048

REACTIONS (9)
  - Vascular rupture [Fatal]
  - Anaemia [Recovering/Resolving]
  - Lung neoplasm malignant [Fatal]
  - Tumour embolism [Fatal]
  - Spinal cord injury [Not Recovered/Not Resolved]
  - Fibrosarcoma [Fatal]
  - Shock haemorrhagic [Fatal]
  - Undifferentiated sarcoma [Fatal]
  - Pleural effusion [Unknown]

NARRATIVE: CASE EVENT DATE: 20150203
